FAERS Safety Report 5677440-6 (Version None)
Quarter: 2008Q1

REPORT INFORMATION
  Report Type: 
  Country: None (occurrence: None)
  Receive Date: 20080324
  Receipt Date: 20080314
  Transmission Date: 20080703
  Serious: Yes (Hospitalization, Other)
  Sender: FDA-Public Use
  Company Number: US-JNJFOC-20080303671

PATIENT
  Age: 71 Year
  Sex: Female
  Weight: 68 kg

DRUGS (4)
  1. TOPAMAX [Suspect]
     Route: 048
  2. TOPAMAX [Suspect]
     Indication: TREMOR
     Route: 048
  3. TOPAMAX [Suspect]
     Indication: HEADACHE
     Route: 048
  4. PRIMIDONE [Concomitant]
     Indication: HEADACHE
     Route: 048

REACTIONS (3)
  - BRAIN NEOPLASM [None]
  - HEADACHE [None]
  - WEIGHT DECREASED [None]
